FAERS Safety Report 7294225-8 (Version None)
Quarter: 2011Q1

REPORT INFORMATION
  Report Type: 
  Country: None (occurrence: None)
  Receive Date: 20110215
  Receipt Date: 20110201
  Transmission Date: 20110831
  Serious: Yes (Death, Hospitalization)
  Sender: FDA-Public Use
  Company Number: US-CELGENEUS-163-21880-10112725

PATIENT
  Sex: Male

DRUGS (6)
  1. PERCOCET [Concomitant]
     Route: 065
  2. TYLENOL [Concomitant]
     Route: 065
  3. HALDOL [Concomitant]
     Route: 051
  4. ATIVAN [Concomitant]
     Route: 051
  5. MORPHINE [Concomitant]
     Route: 051
  6. REVLIMID [Suspect]
     Indication: MULTIPLE MYELOMA
     Route: 048
     Dates: start: 20100801

REACTIONS (1)
  - MULTIPLE MYELOMA [None]
